FAERS Safety Report 24581985 (Version 2)
Quarter: 2024Q4

REPORT INFORMATION
  Report Type: Spontaneous
  Country: DE (occurrence: DE)
  Receive Date: 20241105
  Receipt Date: 20241112
  Transmission Date: 20250114
  Serious: Yes (Death, Other)
  Sender: MERCK
  Company Number: DE-009507513-2411DEU000343

PATIENT
  Sex: Female

DRUGS (1)
  1. KEYTRUDA [Suspect]
     Active Substance: PEMBROLIZUMAB
     Indication: Triple negative breast cancer
     Dosage: UNK

REACTIONS (2)
  - Malignant neoplasm progression [Fatal]
  - Loss of therapeutic response [Unknown]
